FAERS Safety Report 8241658-9 (Version None)
Quarter: 2012Q1

REPORT INFORMATION
  Report Type: 
  Country: None (occurrence: None)
  Receive Date: 20120328
  Receipt Date: 20120319
  Transmission Date: 20120608
  Serious: Yes (Hospitalization)
  Sender: FDA-Public Use
  Company Number: FR-ASTRAZENECA-2012SE19630

PATIENT
  Age: 29682 Day
  Sex: Female

DRUGS (3)
  1. MEROPENEM [Suspect]
     Route: 042
     Dates: start: 20120120, end: 20120220
  2. RIMACTANE [Suspect]
     Route: 048
     Dates: start: 20120120, end: 20120220
  3. CIPROFLOXACIN [Suspect]
     Route: 048
     Dates: start: 20120120, end: 20120220

REACTIONS (5)
  - DRUG RASH WITH EOSINOPHILIA AND SYSTEMIC SYMPTOMS [None]
  - RENAL FAILURE ACUTE [None]
  - AGRANULOCYTOSIS [None]
  - RASH [None]
  - EOSINOPHILIA [None]
